FAERS Safety Report 26075456 (Version 1)
Quarter: 2025Q4

REPORT INFORMATION
  Report Type: Other
  Country: US (occurrence: US)
  Receive Date: 20251121
  Receipt Date: 20251121
  Transmission Date: 20260118
  Serious: No
  Sender: VERASTEM
  Company Number: US-VERASTEM-250926US-AFCPK-00640

PATIENT

DRUGS (2)
  1. AVMAPKI FAKZYNJA CO-PACK [Suspect]
     Active Substance: AVUTOMETINIB POTASSIUM\DEFACTINIB HYDROCHLORIDE
     Indication: Ovarian cancer
     Dosage: AVMAPKI 3.2MG ON DAYS 1,4,8,11,15,18 OF A 28 DAY CYCLE, FAKZYNJA 200MG TWICE DAILY ON DAYS 1-21 OUT
     Route: 048
     Dates: start: 20250901
  2. AVMAPKI FAKZYNJA CO-PACK [Suspect]
     Active Substance: AVUTOMETINIB POTASSIUM\DEFACTINIB HYDROCHLORIDE
     Dosage: AVMAPKI 3 CAPSULES ON DAYS 1 AND 4, FAKZYNJA 1 TABLET ONCE DAILY ON WEEKS 1, 2, AND 3
     Route: 048

REACTIONS (1)
  - Cataract [Not Recovered/Not Resolved]
